FAERS Safety Report 15488261 (Version 1)
Quarter: 2018Q4

REPORT INFORMATION
  Report Type: Spontaneous
  Country: US (occurrence: US)
  Receive Date: 20181011
  Receipt Date: 20181011
  Transmission Date: 20190205
  Serious: No
  Sender: FDA-Public Use
  Company Number: US-RISING PHARMACEUTICALS, INC.-2018RIS00054

PATIENT
  Sex: Female

DRUGS (1)
  1. PROCTOZONE-HC [Suspect]
     Active Substance: HYDROCORTISONE
     Indication: HAEMORRHOIDS
     Dosage: UNK

REACTIONS (4)
  - Application site irritation [Not Recovered/Not Resolved]
  - Application site pruritus [Not Recovered/Not Resolved]
  - Application site dryness [Not Recovered/Not Resolved]
  - Application site pain [Not Recovered/Not Resolved]
